FAERS Safety Report 5950835-9 (Version None)
Quarter: 2008Q4

REPORT INFORMATION
  Report Type: 
  Country: None (occurrence: None)
  Receive Date: 20081110
  Receipt Date: 20081024
  Transmission Date: 20090506
  Serious: Yes (Hospitalization)
  Sender: FDA-Public Use
  Company Number: 8039055

PATIENT
  Age: 54 Year
  Sex: Male

DRUGS (3)
  1. KEPPRA [Suspect]
     Indication: CONVULSION
     Dates: start: 20080115, end: 20080601
  2. KEPPRA [Suspect]
     Indication: CONVULSION
     Dosage: 1500 MG 2/D
     Dates: start: 20080601
  3. CARBAMAZEPINE [Concomitant]

REACTIONS (2)
  - CONVULSION [None]
  - DRUG INEFFECTIVE [None]
